FAERS Safety Report 17680049 (Version 1)
Quarter: 2020Q2

REPORT INFORMATION
  Report Type: Report from Study
  Country: CO (occurrence: CO)
  Receive Date: 20200417
  Receipt Date: 20200417
  Transmission Date: 20200714
  Serious: Yes (Hospitalization, Other)
  Sender: FDA-Public Use
  Company Number: CO-ASTELLAS-2019US036424

PATIENT
  Age: 3 Year
  Sex: Female
  Weight: 46 kg

DRUGS (8)
  1. AMLODIPINE [Concomitant]
     Active Substance: AMLODIPINE BESYLATE
     Indication: BLOOD PRESSURE ABNORMAL
     Dosage: 0.5 DF, UNKNOWN FREQ.
     Route: 048
     Dates: start: 20090822
  2. TACROLIMUS. [Suspect]
     Active Substance: TACROLIMUS
     Dosage: 6 MG, ONCE DAILY (1 CAPSULES OF 5 MG AND 1 CAPSULE OF 1 MG)
     Route: 048
     Dates: start: 202003
  3. PREDNISOLONE. [Concomitant]
     Active Substance: PREDNISOLONE
     Indication: PRODUCT USED FOR UNKNOWN INDICATION
     Dosage: 5 MG, OTHER (MONDAY. WENESDAY, FRIDAY) STOP DATE MAR-2020
     Route: 048
  4. TACROLIMUS. [Suspect]
     Active Substance: TACROLIMUS
     Dosage: 5 MG, ONCE DAILY (1 CAPSULE OF 5 MG)
     Route: 048
     Dates: start: 201906, end: 202003
  5. PREDNISOLONE. [Concomitant]
     Active Substance: PREDNISOLONE
     Dosage: 10 MG, OTHER (MONDAY, WEDNESDAY AND FRIDAY)
     Route: 048
     Dates: start: 202003
  6. MYCOPHENOLATE [Concomitant]
     Active Substance: MYCOPHENOLIC ACID
     Indication: PRODUCT USED FOR UNKNOWN INDICATION
     Dosage: 520 MG, TWICE DAILY (520 MG AT MORNING AND 520 MG AT NIGHT)
     Route: 048
  7. TACROLIMUS. [Suspect]
     Active Substance: TACROLIMUS
     Indication: RENAL TRANSPLANT
     Dosage: 8 MG, ONCE DAILY (1 CAPSULE OF 5 MG AND 3 CAPSULE OF 1 MG)
     Route: 048
     Dates: start: 20090823, end: 201906
  8. MYCOPHENOLATE [Concomitant]
     Active Substance: MYCOPHENOLIC ACID
     Dosage: 540 MG, EVERY 12 HOURS (360+180 MG)
     Route: 048
     Dates: start: 20090822

REACTIONS (9)
  - Kidney transplant rejection [Recovered/Resolved]
  - Blood creatinine abnormal [Unknown]
  - Immunosuppressant drug level decreased [Unknown]
  - Kidney transplant rejection [Unknown]
  - Secondary immunodeficiency [Unknown]
  - Anaemia [Recovered/Resolved]
  - Tuberculosis [Recovered/Resolved]
  - Pneumonia [Unknown]
  - Diabetes mellitus [Unknown]

NARRATIVE: CASE EVENT DATE: 200908
